FAERS Safety Report 8784031 (Version 3)
Quarter: 2012Q4

REPORT INFORMATION
  Report Type: 
  Country: US (occurrence: US)
  Receive Date: 20120913
  Receipt Date: 20121214
  Transmission Date: 20130627
  Serious: Yes (Other)
  Sender: FDA-Public Use
  Company Number: US-VERTEX PHARMACEUTICAL INC.-AE-2012-009428

PATIENT
  Age: 59 Year
  Sex: Male

DRUGS (6)
  1. VX-950 (TELAPREVIR) [Suspect]
     Indication: HEPATITIS C
     Dosage: UNK
     Route: 048
     Dates: start: 20120523, end: 20120815
  2. PEGASYS [Suspect]
     Indication: HEPATITIS C
     Dosage: UNK ?g, qw
     Route: 058
     Dates: start: 20120523
  3. PEGASYS [Suspect]
     Dosage: 90 ?g, qw
     Route: 058
  4. RIBAVIRIN [Suspect]
     Indication: HEPATITIS C
     Dosage: UNK mg, qd
     Route: 048
     Dates: start: 20120523
  5. RIBAVIRIN [Suspect]
     Dosage: 1000 UNK, UNK
     Route: 048
  6. RIBAVIRIN [Suspect]
     Dosage: 600 mg, qd
     Route: 048

REACTIONS (4)
  - Anaemia [Not Recovered/Not Resolved]
  - Fatigue [Not Recovered/Not Resolved]
  - Rash [Not Recovered/Not Resolved]
  - Platelet count decreased [Not Recovered/Not Resolved]
